FAERS Safety Report 8922749 (Version 1)
Quarter: 2012Q4

REPORT INFORMATION
  Report Type: 
  Country: US (occurrence: US)
  Receive Date: 20121123
  Receipt Date: 20121123
  Transmission Date: 20130627
  Serious: Yes (Other)
  Sender: FDA-Public Use
  Company Number: US-BRISTOL-MYERS SQUIBB COMPANY-17152380

PATIENT
  Age: 64 Year
  Sex: Female

DRUGS (1)
  1. TRIAMCINOLONE ACETONIDE [Suspect]
     Indication: SPINAL OSTEOARTHRITIS

REACTIONS (7)
  - Uterine haemorrhage [Recovered/Resolved]
  - Pyrexia [None]
  - Chills [None]
  - Nausea [None]
  - Diarrhoea [None]
  - Blood culture positive [None]
  - Endometrial hypertrophy [None]
